FAERS Safety Report 25713193 (Version 1)
Quarter: 2025Q3

REPORT INFORMATION
  Report Type: Spontaneous
  Country: EU (occurrence: EU)
  Receive Date: 20250822
  Receipt Date: 20250822
  Transmission Date: 20251021
  Serious: Yes (Other)
  Sender: ROCHE
  Company Number: None

PATIENT
  Age: 37 Year
  Sex: Female
  Weight: 85 kg

DRUGS (1)
  1. OMALIZUMAB [Suspect]
     Active Substance: OMALIZUMAB
     Indication: Urticaria
     Route: 065

REACTIONS (1)
  - Acute hepatitis B [Recovering/Resolving]

NARRATIVE: CASE EVENT DATE: 20250801
